FAERS Safety Report 7777838-6 (Version None)
Quarter: 2011Q3

REPORT INFORMATION
  Report Type: 
  Country: None (occurrence: None)
  Receive Date: 20110926
  Receipt Date: 20110915
  Transmission Date: 20111222
  Serious: No
  Sender: FDA-Public Use
  Company Number: US-BIOGENIDEC-2011BI035682

PATIENT
  Sex: Female

DRUGS (1)
  1. TYSABRI [Suspect]
     Indication: MULTIPLE SCLEROSIS
     Route: 042
     Dates: start: 20080605

REACTIONS (11)
  - MUSCLE SPASMS [None]
  - AMNESIA [None]
  - PROCEDURAL COMPLICATION [None]
  - TOOTH EXTRACTION [None]
  - PAIN [None]
  - DYSMENORRHOEA [None]
  - ROAD TRAFFIC ACCIDENT [None]
  - URINARY INCONTINENCE [None]
  - CONTUSION [None]
  - MOOD SWINGS [None]
  - POST-TRAUMATIC NECK SYNDROME [None]
